FAERS Safety Report 8376490-9 (Version None)
Quarter: 2012Q2

REPORT INFORMATION
  Report Type: 
  Country: None (occurrence: None)
  Receive Date: 20120522
  Receipt Date: 20120511
  Transmission Date: 20120825
  Serious: Yes (Congenital Anomaly, Other)
  Sender: FDA-Public Use
  Company Number: DE-PFIZER INC-2012119332

PATIENT
  Sex: Male
  Weight: 2.34 kg

DRUGS (10)
  1. OMEPRAZOLE [Suspect]
  2. MEPERIDINE HCL [Suspect]
     Dosage: UNK
     Route: 064
  3. MELPERON ^CT-ARZNEIMITTEL^ [Suspect]
     Dosage: 1TABLET,TID
     Route: 064
     Dates: end: 20100218
  4. FOLSAEURE ^HEVERT^ [Suspect]
  5. MORPHINE SULFATE [Suspect]
     Dosage: 40 MG, DAILY
     Route: 064
     Dates: start: 20091013
  6. ANTACIDA FNA [Suspect]
     Dosage: UNK
  7. MORPHINE SULFATE [Suspect]
     Dosage: 300 MG,DAILY
     Route: 064
     Dates: end: 20100613
  8. HYDROXYUREA [Suspect]
     Dosage: 1000 MG,DAILY
     Route: 064
     Dates: start: 20091013, end: 20100218
  9. AGOMELATINE [Suspect]
     Dosage: 25 MG, DAILY
     Route: 064
     Dates: end: 20100218
  10. HALDOL [Suspect]
     Dosage: UNK
     Dates: end: 20100218

REACTIONS (4)
  - MATERNAL EXPOSURE TIMING UNSPECIFIED [None]
  - PREMATURE BABY [None]
  - OESOPHAGEAL ATRESIA [None]
  - DRUG WITHDRAWAL SYNDROME NEONATAL [None]
